FAERS Safety Report 25329099 (Version 1)
Quarter: 2025Q2

REPORT INFORMATION
  Report Type: Report from Study
  Country: FR (occurrence: FR)
  Receive Date: 20250519
  Receipt Date: 20250519
  Transmission Date: 20250717
  Serious: Yes (Death)
  Sender: ROCHE
  Company Number: FR-ROCHE-10000284875

PATIENT

DRUGS (4)
  1. RITUXIMAB [Suspect]
     Active Substance: RITUXIMAB
     Indication: Mucous membrane pemphigoid
     Route: 065
  2. DAPSONE [Concomitant]
     Active Substance: DAPSONE
  3. SULFASALAZINE [Concomitant]
     Active Substance: SULFASALAZINE
  4. DOXYCYCLINE [Concomitant]
     Active Substance: DOXYCYCLINE

REACTIONS (3)
  - Death [Fatal]
  - Infection [Unknown]
  - Off label use [Fatal]
